FAERS Safety Report 8322972-5 (Version None)
Quarter: 2012Q2

REPORT INFORMATION
  Report Type: 
  Country: None (occurrence: None)
  Receive Date: 20120430
  Receipt Date: 20120427
  Transmission Date: 20120825
  Serious: Yes (Other)
  Sender: FDA-Public Use
  Company Number: BR-ABBOTT-11P-020-0727057-00

PATIENT
  Sex: Female
  Weight: 59 kg

DRUGS (11)
  1. PREDNISONE [Concomitant]
     Indication: RHEUMATOID ARTHRITIS
     Route: 048
  2. CAPTOPRIL [Concomitant]
     Indication: HYPERTENSION
     Route: 048
  3. NIFEDIPINE [Concomitant]
     Indication: HYPERTENSION
     Route: 048
  4. CALCIUM CARBONATE 600MG, VITAMIN D3 400IU [Concomitant]
     Indication: PRODUCT USED FOR UNKNOWN INDICATION
     Route: 048
     Dates: start: 20110501
  5. FOLIC ACID [Concomitant]
     Indication: PRODUCT USED FOR UNKNOWN INDICATION
     Route: 048
  6. ASPIRIN [Concomitant]
     Indication: HYPERTENSION
     Route: 048
  7. HUMIRA [Suspect]
     Indication: RHEUMATOID ARTHRITIS
     Route: 058
     Dates: end: 20120405
  8. OMEPRAZOLE [Concomitant]
     Indication: PROPHYLAXIS
     Route: 048
  9. METHOTREXATE [Concomitant]
     Indication: RHEUMATOID ARTHRITIS
     Route: 048
  10. METHOTREXATE [Concomitant]
     Route: 058
  11. UNKNOWN DRUG [Concomitant]
     Indication: PAIN

REACTIONS (7)
  - TOOTH DISORDER [None]
  - TOOTH EROSION [None]
  - TOOTHACHE [None]
  - INFLAMMATION [None]
  - GINGIVAL BLEEDING [None]
  - TOOTH DEPOSIT [None]
  - PAIN [None]
